FAERS Safety Report 6918497-1 (Version None)
Quarter: 2010Q3

REPORT INFORMATION
  Report Type: 
  Country: None (occurrence: None)
  Receive Date: 20100811
  Receipt Date: 20100806
  Transmission Date: 20110219
  Serious: Yes (Hospitalization)
  Sender: FDA-Public Use
  Company Number: FR-WYE-G06512010

PATIENT
  Sex: Female
  Weight: 9.15 kg

DRUGS (2)
  1. CHILDREN'S ADVIL [Suspect]
     Indication: PYREXIA
     Dosage: UNKNOWN
     Route: 048
     Dates: start: 20100521, end: 20100523
  2. DOLIPRANE [Concomitant]
     Indication: PYREXIA
     Dosage: UNKNOWN
     Route: 048
     Dates: start: 20100521, end: 20100523

REACTIONS (3)
  - CONDITION AGGRAVATED [None]
  - PLEURISY [None]
  - PNEUMONIA PNEUMOCOCCAL [None]
